FAERS Safety Report 6044377-2 (Version None)
Quarter: 2009Q1

REPORT INFORMATION
  Report Type: 
  Country: None (occurrence: None)
  Receive Date: 20090115
  Receipt Date: 20090115
  Transmission Date: 20090719
  Serious: Yes (Death, Hospitalization)
  Sender: FDA-Public Use
  Company Number: None

PATIENT
  Sex: Female
  Weight: 71.7 kg

DRUGS (2)
  1. CYTARABINE [Suspect]
     Dosage: 1225 MG
     Dates: end: 20081228
  2. DAUNORUBICIN HCL [Suspect]
     Dosage: 315 MG
     Dates: end: 20081224

REACTIONS (11)
  - BRAIN DEATH [None]
  - BRAIN HERNIATION [None]
  - CEREBRAL HAEMORRHAGE [None]
  - CEREBROVASCULAR ACCIDENT [None]
  - GENERAL PHYSICAL HEALTH DETERIORATION [None]
  - HAEMATEMESIS [None]
  - HAEMOPTYSIS [None]
  - MENTAL STATUS CHANGES [None]
  - MYDRIASIS [None]
  - PLATELET COUNT DECREASED [None]
  - PULMONARY HAEMORRHAGE [None]
